FAERS Safety Report 9476232 (Version 1)
Quarter: 2013Q3

REPORT INFORMATION
  Report Type: Spontaneous
  Country: US (occurrence: US)
  Receive Date: 20130826
  Receipt Date: 20130826
  Transmission Date: 20140515
  Serious: Yes (Hospitalization)
  Sender: FDA-Public Use
  Company Number: US-ROCHE-1265693

PATIENT
  Sex: Male

DRUGS (1)
  1. XELODA [Suspect]
     Indication: NEOPLASM MALIGNANT
     Route: 065

REACTIONS (14)
  - Abdominal pain upper [Unknown]
  - Blister [Unknown]
  - Erythema [Unknown]
  - Back pain [Unknown]
  - Musculoskeletal stiffness [Unknown]
  - Oropharyngeal pain [Unknown]
  - Dysphagia [Unknown]
  - Oropharyngeal pain [Unknown]
  - Nasal congestion [Unknown]
  - Somnolence [Unknown]
  - Oral mucosal blistering [Unknown]
  - Abdominal distension [Unknown]
  - Neck pain [Unknown]
  - Skin warm [Unknown]
